FAERS Safety Report 5368295-8 (Version None)
Quarter: 2007Q2

REPORT INFORMATION
  Report Type: 
  Country: None (occurrence: None)
  Receive Date: 20070620
  Receipt Date: 20070605
  Transmission Date: 20071010
  Serious: Yes (Death)
  Sender: FDA-Public Use
  Company Number: 2007JP002539

PATIENT
  Sex: 0

DRUGS (2)
  1. FUNGUARD (MICAFUNGIN) [Suspect]
     Indication: CANDIDIASIS
     Dosage: SEE IMAGE
     Route: 042
  2. FLUCONAZOLE [Concomitant]

REACTIONS (1)
  - ASPERGILLOSIS [None]
